FAERS Safety Report 24429057 (Version 2)
Quarter: 2024Q4

REPORT INFORMATION
  Report Type: Spontaneous
  Country: SE (occurrence: SE)
  Receive Date: 20241011
  Receipt Date: 20241218
  Transmission Date: 20250115
  Serious: Yes (Death, Other)
  Sender: DAIICHI
  Company Number: None

PATIENT
  Age: 59 Year
  Sex: Female

DRUGS (18)
  1. ENHERTU [Suspect]
     Active Substance: FAM-TRASTUZUMAB DERUXTECAN-NXKI
     Indication: Breast cancer
     Dosage: UNK UNK, ONCE EVERY 3 WK (DOSED BY WEIGHT))
     Route: 042
     Dates: start: 20240626, end: 20240626
  2. AMITRIPTYLINE [Concomitant]
     Active Substance: AMITRIPTYLINE
     Indication: Product used for unknown indication
     Dosage: 20 MG, QD, 2 FOR NIGHT
     Route: 048
  3. TARGINIQ ER [Concomitant]
     Active Substance: NALOXONE HYDROCHLORIDE\OXYCODONE HYDROCHLORIDE
     Indication: Product used for unknown indication
     Dosage: 3 DOSAGE FORM, BID,3 TABLETS 2 TIMES A DAY.
     Route: 048
  4. FLUCLOXACILLIN SODIUM [Concomitant]
     Active Substance: FLUCLOXACILLIN SODIUM
     Indication: Product used for unknown indication
     Dosage: 1 G, TID (1X3)
     Route: 048
     Dates: start: 20240624, end: 20240626
  5. CANDESARTAN [Concomitant]
     Active Substance: CANDESARTAN
     Indication: Product used for unknown indication
     Dosage: 8 MG, QD
     Route: 048
  6. METHADONE HYDROCHLORIDE [Concomitant]
     Active Substance: METHADONE HYDROCHLORIDE
     Indication: Product used for unknown indication
     Dosage: 2.5 DOSAGE FORM, BID
     Route: 048
  7. SODIUM PICOSULFATE [Concomitant]
     Active Substance: SODIUM PICOSULFATE
     Indication: Product used for unknown indication
     Dosage: 10 DROP, AS NEEDED, 10 DROPS IF NEEDED (7.5 MG/ML)
     Route: 048
  8. GAVISCON [ALUMINIUM HYDROXIDE;CALCIUM CARBONATE;SODIUM ALGINATE;SODIUM [Concomitant]
     Indication: Product used for unknown indication
     Dosage: UNK UNK, AS NEEDED,10-20 ML IF NEEDED
     Route: 048
  9. HYDROCORTISONE ACETATE\LIDOCAINE HYDROCHLORIDE [Concomitant]
     Active Substance: HYDROCORTISONE ACETATE\LIDOCAINE HYDROCHLORIDE
     Indication: Product used for unknown indication
     Dosage: 1 DOSAGE FORM, AS NEEDED,1 IF NECESSARY
     Route: 065
  10. OXYCODONE HYDROCHLORIDE [Concomitant]
     Active Substance: OXYCODONE HYDROCHLORIDE
     Indication: Product used for unknown indication
     Dosage: UNK UNK, AS NEEDED, 0.5-1 TABLET IF NEEDED
     Route: 048
  11. OMEPRAZOLE [Concomitant]
     Active Substance: OMEPRAZOLE
     Indication: Product used for unknown indication
     Dosage: 20 MG, QD
     Route: 048
  12. COLGATE DURAPHAT [Concomitant]
     Active Substance: SODIUM FLUORIDE
     Indication: Product used for unknown indication
     Dosage: UNK,AS PRESCRIBED (5 MG/G, MG/G))
     Route: 065
  13. ZOPICLONE [Concomitant]
     Active Substance: ZOPICLONE
     Indication: Product used for unknown indication
     Dosage: 7.5 MG, AS NEEDED, 1 IF NECESSARY
     Route: 048
  14. OLANZAPINE [Concomitant]
     Active Substance: OLANZAPINE
     Indication: Product used for unknown indication
     Dosage: 2.5 MG, QD
     Route: 048
  15. ACETAMINOPHEN [Concomitant]
     Active Substance: ACETAMINOPHEN
     Indication: Product used for unknown indication
     Dosage: UNK UNK, AS NEEDED, 1-2 IF NEEDED
     Route: 048
  16. CARBOMER [Concomitant]
     Active Substance: CARBOMER
     Indication: Product used for unknown indication
     Dosage: UNK UNK, AS NEEDED,1 IF NECESSARY (2 MG/G)
  17. LACTULOSE [Concomitant]
     Active Substance: LACTULOSE
     Indication: Product used for unknown indication
     Dosage: 20 ML, AS NEEDED
     Route: 048
  18. ACETYLCYSTEINE [Concomitant]
     Active Substance: ACETYLCYSTEINE
     Indication: Product used for unknown indication
     Dosage: 200 MG, AS NEEDED, 1 IF NECESSARY
     Route: 048

REACTIONS (4)
  - Acute respiratory failure [Fatal]
  - Pancytopenia [Fatal]
  - Pneumonitis [Fatal]
  - Interstitial lung disease [Fatal]

NARRATIVE: CASE EVENT DATE: 20240101
